FAERS Safety Report 5649398-7 (Version None)
Quarter: 2008Q1

REPORT INFORMATION
  Report Type: 
  Country: None (occurrence: None)
  Receive Date: 20080304
  Receipt Date: 20071102
  Transmission Date: 20080703
  Serious: No
  Sender: FDA-Public Use
  Company Number: US-BAYER-200812360NA

PATIENT

DRUGS (1)
  1. ULTRAVIST 300 [Suspect]

REACTIONS (1)
  - ADVERSE EVENT [None]
